FAERS Safety Report 9490911 (Version 1)
Quarter: 2013Q3

REPORT INFORMATION
  Report Type: Spontaneous
  Country: US (occurrence: US)
  Receive Date: 20130830
  Receipt Date: 20130830
  Transmission Date: 20140515
  Serious: Yes (Hospitalization)
  Sender: FDA-Public Use
  Company Number: US-PFIZER INC-2013247296

PATIENT
  Age: 71 Year
  Sex: Female
  Weight: 59.41 kg

DRUGS (4)
  1. SUTENT [Suspect]
     Indication: RENAL CELL CARCINOMA
     Dosage: 25 MG, 1X/DAY
     Route: 048
     Dates: start: 20130725, end: 2013
  2. SUTENT [Suspect]
     Dosage: 12.5 MG, 1X/DAY
     Route: 048
     Dates: start: 2013
  3. SUTENT [Suspect]
     Dosage: UNK
     Route: 048
  4. RANITIDINE [Concomitant]
     Dosage: UNK

REACTIONS (2)
  - Pyrexia [Unknown]
  - Nausea [Unknown]
